FAERS Safety Report 18817618 (Version 1)
Quarter: 2021Q1

REPORT INFORMATION
  Report Type: Other
  Country: US (occurrence: US)
  Receive Date: 20210201
  Receipt Date: 20210201
  Transmission Date: 20210419
  Serious: Yes (Other)
  Sender: FDA-Public Use
  Company Number: US-GRAVITI PHARMACEUTICALS PRIVATE LIMITED-2106114

PATIENT
  Sex: Male

DRUGS (3)
  1. ATORVASTATIN CALCIUM. [Suspect]
     Active Substance: ATORVASTATIN CALCIUM
     Indication: HYPERLIPIDAEMIA
     Route: 065
  2. DURVALUMAB. [Concomitant]
     Active Substance: DURVALUMAB
     Route: 065
  3. ROSUVASTATIN. [Suspect]
     Active Substance: ROSUVASTATIN
     Route: 065

REACTIONS (9)
  - Toxicity to various agents [Unknown]
  - Myositis [Unknown]
  - Myocarditis [Unknown]
  - Dyspnoea [Unknown]
  - Diplopia [Unknown]
  - Myalgia [Unknown]
  - Eyelid ptosis [Unknown]
  - Myopathy [Unknown]
  - Asthenia [Unknown]
